FAERS Safety Report 7668893-2 (Version None)
Quarter: 2011Q3

REPORT INFORMATION
  Report Type: 
  Country: None (occurrence: None)
  Receive Date: 20110808
  Receipt Date: 20110802
  Transmission Date: 20111222
  Serious: Yes (Other)
  Sender: FDA-Public Use
  Company Number: BR-SANOFI-AVENTIS-2011SA049890

PATIENT
  Age: 0 Day
  Sex: Female
  Weight: 5.15 kg

DRUGS (1)
  1. LANTUS [Suspect]
     Indication: DIABETIC RELATIVE
     Route: 015
     Dates: start: 20100920

REACTIONS (3)
  - MATERNAL EXPOSURE DURING PREGNANCY [None]
  - HYPOGLYCAEMIA NEONATAL [None]
  - GASTROOESOPHAGEAL REFLUX DISEASE [None]
